FAERS Safety Report 8389171-2 (Version None)
Quarter: 2012Q2

REPORT INFORMATION
  Report Type: 
  Country: None (occurrence: None)
  Receive Date: 20120528
  Receipt Date: 20120524
  Transmission Date: 20120825
  Serious: Yes (Other)
  Sender: FDA-Public Use
  Company Number: PHHY2012SE043050

PATIENT
  Sex: Female

DRUGS (4)
  1. TEGRETOL [Suspect]
     Dosage: 4 DF, 2 IN MORNING AND 2 IN EVENING
  2. LAMICTAL [Interacting]
     Dosage: 50 MG, UNK
  3. LAMOTRIGINE [Concomitant]
  4. LAMICTAL [Interacting]
     Dosage: 0.25 MG, UNK

REACTIONS (11)
  - EAR HAEMORRHAGE [None]
  - SENSATION OF PRESSURE [None]
  - PAIN [None]
  - EPISTAXIS [None]
  - LUNG DISORDER [None]
  - CHEST PAIN [None]
  - MOOD ALTERED [None]
  - ALOPECIA [None]
  - TINNITUS [None]
  - RENAL DISORDER [None]
  - FEELING ABNORMAL [None]
